FAERS Safety Report 21348254 (Version 1)
Quarter: 2022Q3

REPORT INFORMATION
  Report Type: Spontaneous
  Country: US (occurrence: None)
  Receive Date: 20220916
  Receipt Date: 20220916
  Transmission Date: 20221027
  Serious: Yes (Death)
  Sender: FDA-Public Use
  Company Number: None

PATIENT
  Age: 69 Year
  Sex: Male
  Weight: 136.98 kg

DRUGS (10)
  1. RETACRIT [Suspect]
     Active Substance: EPOETIN ALFA-EPBX
     Indication: Myelodysplastic syndrome
     Dosage: OTHER STRENGTH : 40000 UNITS;?OTHER QUANTITY : 40000 UNITS;?FREQUENCY : WEEKLY;?
     Route: 048
  2. CELEBREX [Concomitant]
     Active Substance: CELECOXIB
  3. DIGOXIN [Concomitant]
     Active Substance: DIGOXIN
  4. FOLIC ACID [Concomitant]
     Active Substance: FOLIC ACID
  5. KETOROLAC [Concomitant]
     Active Substance: KETOROLAC TROMETHAMINE
  6. Oxycodone SM [Concomitant]
  7. VITAMINS [Concomitant]
     Active Substance: VITAMINS
  8. TORSEMIDE [Concomitant]
     Active Substance: TORSEMIDE
  9. VITAMIN B12 [Concomitant]
     Active Substance: CYANOCOBALAMIN
  10. VITAMIN D3 [Concomitant]
     Active Substance: CHOLECALCIFEROL

REACTIONS (1)
  - Death [None]
